FAERS Safety Report 10232387 (Version 1)
Quarter: 2014Q2

REPORT INFORMATION
  Report Type: Report from Study
  Country: ES (occurrence: ES)
  Receive Date: 20140612
  Receipt Date: 20140612
  Transmission Date: 20141212
  Serious: Yes (Death)
  Sender: FDA-Public Use
  Company Number: ES-BAYER-2014-087606

PATIENT
  Age: 12 Week
  Sex: 0

DRUGS (2)
  1. BETAFERON [Suspect]
     Dosage: UNK
     Route: 064
  2. BETAFERON [Suspect]
     Dosage: UNK
     Dates: start: 20131223, end: 201403

REACTIONS (3)
  - Foetal disorder [Fatal]
  - Foetal heart rate abnormal [Fatal]
  - Foetal exposure during pregnancy [None]
